FAERS Safety Report 18103583 (Version 1)
Quarter: 2020Q3

REPORT INFORMATION
  Report Type: Spontaneous
  Country: US (occurrence: US)
  Receive Date: 20200731
  Receipt Date: 20200731
  Transmission Date: 20201103
  Serious: No
  Sender: FDA-Public Use
  Company Number: None

PATIENT
  Age: 65 Year
  Sex: Female

DRUGS (1)
  1. BUFFALO CHIP HAND SANITIZER [Suspect]
     Active Substance: ALCOHOL

REACTIONS (1)
  - Rash [None]
